FAERS Safety Report 22068053 (Version 1)
Quarter: 2023Q1

REPORT INFORMATION
  Report Type: Spontaneous
  Country: CH (occurrence: CH)
  Receive Date: 20230307
  Receipt Date: 20230307
  Transmission Date: 20230417
  Serious: Yes (Other)
  Sender: FDA-Public Use
  Company Number: CH-002147023-NVSC2023CH029396

PATIENT
  Age: 54 Year
  Sex: Female

DRUGS (1)
  1. HYRIMOZ [Suspect]
     Active Substance: ADALIMUMAB-ADAZ
     Indication: Spondyloarthropathy
     Dosage: 40 MG, Q2W
     Route: 058
     Dates: start: 202106

REACTIONS (5)
  - Ligament rupture [Recovered/Resolved]
  - Ligament sprain [Recovered/Resolved]
  - Fascial rupture [Recovered/Resolved]
  - Pain in extremity [Recovering/Resolving]
  - Drug ineffective [Recovering/Resolving]

NARRATIVE: CASE EVENT DATE: 20220901
